FAERS Safety Report 4732831-2 (Version None)
Quarter: 2005Q3

REPORT INFORMATION
  Report Type: 
  Country: None (occurrence: None)
  Receive Date: 20050801
  Receipt Date: 20050721
  Transmission Date: 20060218
  Serious: Yes (Hospitalization, Disabling, Other)
  Sender: FDA-Public Use
  Company Number: 2005-06-0159

PATIENT
  Age: 69 Year
  Sex: Male
  Weight: 59 kg

DRUGS (4)
  1. PEG-INTRON [Suspect]
     Indication: HEPATITIS C
     Dosage: 80 MCG QW SUBCUTANEOUS
     Route: 058
     Dates: start: 20050323, end: 20050517
  2. REBETOL [Suspect]
     Indication: HEPATITIS C
     Dosage: 600 MG ORAL
     Route: 048
     Dates: start: 20050323, end: 20050521
  3. ASPIRIN [Concomitant]
  4. GLYBURIDE [Concomitant]

REACTIONS (6)
  - BLOOD PRESSURE INCREASED [None]
  - CARDIOMEGALY [None]
  - CEREBELLAR INFARCTION [None]
  - ELECTROCARDIOGRAM ABNORMAL [None]
  - GENERAL PHYSICAL CONDITION ABNORMAL [None]
  - HAEMORRHAGIC CEREBRAL INFARCTION [None]
